FAERS Safety Report 18724027 (Version 1)
Quarter: 2021Q1

REPORT INFORMATION
  Report Type: Spontaneous
  Country: NO (occurrence: NO)
  Receive Date: 20210111
  Receipt Date: 20210111
  Transmission Date: 20210419
  Serious: Yes (Disabling)
  Sender: FDA-Public Use
  Company Number: NO-ROCHE-2746907

PATIENT
  Age: 35 Year
  Sex: Male

DRUGS (7)
  1. BENZATHINE PHENOXYMETHYL PENICILLIN [Concomitant]
     Active Substance: PENICILLIN V BENZATHINE
     Indication: ERYSIPELAS
     Route: 065
     Dates: start: 20201206, end: 20201215
  2. XOLAIR [Suspect]
     Active Substance: OMALIZUMAB
     Indication: ASTHMA
     Dosage: (2 INJECTIONS EVERY 4TH WEEK)
     Route: 058
     Dates: start: 20201217
  3. AERIUS [Concomitant]
     Indication: HYPERSENSITIVITY
     Route: 065
     Dates: start: 201907
  4. LIVOLIN [Concomitant]
     Active Substance: VITAMINS
     Indication: PRODUCT USED FOR UNKNOWN INDICATION
     Route: 065
  5. VI?SIBLIN [Concomitant]
     Indication: CONSTIPATION
     Route: 065
     Dates: start: 201907
  6. MONTELUKAST [Concomitant]
     Active Substance: MONTELUKAST SODIUM
     Indication: ASTHMA
     Dosage: (1 TABLET EVERY NIGHT)
     Route: 065
     Dates: start: 2019
  7. VITAMIN D3 [Concomitant]
     Active Substance: CHOLECALCIFEROL
     Indication: PRODUCT USED FOR UNKNOWN INDICATION
     Route: 030

REACTIONS (2)
  - Abdominal pain [Recovering/Resolving]
  - Fatigue [Not Recovered/Not Resolved]

NARRATIVE: CASE EVENT DATE: 20201217
